FAERS Safety Report 7834154-1 (Version None)
Quarter: 2011Q4

REPORT INFORMATION
  Report Type: 
  Country: None (occurrence: None)
  Receive Date: 20111024
  Receipt Date: 20111012
  Transmission Date: 20120403
  Serious: Yes (Hospitalization, Other)
  Sender: FDA-Public Use
  Company Number: PHFR2011GB05220

PATIENT
  Sex: Male

DRUGS (7)
  1. SERTRALINE HYDROCHLORIDE [Concomitant]
     Indication: DEPRESSIVE SYMPTOM
     Dosage: 100 MG, UNK
     Route: 048
  2. CLOZARIL [Suspect]
     Dosage: 500 MG
     Dates: start: 20110601, end: 20110905
  3. CLOZARIL [Suspect]
     Indication: SCHIZOPHRENIA
     Dosage: 250 MG/DAY
     Route: 048
     Dates: start: 20060726
  4. CLOZARIL [Suspect]
     Route: 048
  5. THIAMINE HCL [Concomitant]
     Dosage: 200 MG, UNK
     Route: 048
  6. CLOZARIL [Suspect]
     Dosage: 100 MG AM + 400 MG AT NIGHT
  7. CLOZARIL [Suspect]
     Dosage: 400 MG/DAY
     Dates: end: 20110906

REACTIONS (9)
  - FOOT FRACTURE [None]
  - LOSS OF CONSCIOUSNESS [None]
  - DIABETES MELLITUS [None]
  - FALL [None]
  - MYOCLONUS [None]
  - SCHIZOPHRENIA [None]
  - CONVULSION [None]
  - HYPERCHOLESTEROLAEMIA [None]
  - INJURY [None]
